FAERS Safety Report 8462273-8 (Version None)
Quarter: 2012Q2

REPORT INFORMATION
  Report Type: 
  Country: None (occurrence: None)
  Receive Date: 20120625
  Receipt Date: 20120618
  Transmission Date: 20120825
  Serious: Yes (Hospitalization)
  Sender: FDA-Public Use
  Company Number: US-BAYER-2012-034638

PATIENT
  Sex: Female
  Weight: 58.957 kg

DRUGS (5)
  1. SINUS MEDICINE [Concomitant]
     Indication: SINUS DISORDER
     Dosage: UNK
     Dates: start: 19980101
  2. YAZ [Suspect]
     Indication: PREMENSTRUAL SYNDROME
     Dosage: UNK
     Dates: start: 20080101, end: 20090101
  3. ASCORBIC ACID [Concomitant]
  4. YAZ [Suspect]
  5. NSAID'S [Concomitant]

REACTIONS (1)
  - CHOLELITHIASIS [None]
